FAERS Safety Report 17579943 (Version 1)
Quarter: 2020Q1

REPORT INFORMATION
  Report Type: Spontaneous
  Country: DE (occurrence: DE)
  Receive Date: 20200325
  Receipt Date: 20200325
  Transmission Date: 20200409
  Serious: Yes (Death, Hospitalization)
  Sender: FDA-Public Use
  Company Number: DE-HIKMA PHARMACEUTICALS USA INC.-DE-H14001-20-50913

PATIENT
  Age: 47 Year
  Sex: Female
  Weight: 61 kg

DRUGS (12)
  1. CARBOPLATIN. [Suspect]
     Active Substance: CARBOPLATIN
     Indication: CERVIX CARCINOMA
     Dosage: 800 MG QD 5TH CYCLE(S) ()
     Route: 042
  2. CAELYX (LIPOSOMAL DOXORUBICIN) [Suspect]
     Active Substance: DOXORUBICIN HYDROCHLORIDE
     Indication: CERVIX CARCINOMA
     Dosage: 67.6 MG QD 2ND CYCLE(S) ()
     Route: 042
  3. CARBOPLATIN. [Suspect]
     Active Substance: CARBOPLATIN
     Indication: CERVIX CARCINOMA
     Route: 042
     Dates: start: 20040701, end: 20041021
  4. CARBOPLATIN. [Suspect]
     Active Substance: CARBOPLATIN
     Indication: CERVIX CARCINOMA
     Dosage: 792 MG QD 2ND CYCLE(S) ()
     Route: 042
  5. CAELYX (LIPOSOMAL DOXORUBICIN) [Suspect]
     Active Substance: DOXORUBICIN HYDROCHLORIDE
     Indication: CERVIX CARCINOMA
     Dosage: 66.4 MG QD 3RD CYCLE(S) ()
     Route: 042
  6. CAELYX (LIPOSOMAL DOXORUBICIN) [Suspect]
     Active Substance: DOXORUBICIN HYDROCHLORIDE
     Indication: CERVIX CARCINOMA
     Dosage: 67.6 MG QD 1ST CYCLE(S) ()
     Route: 042
  7. CARBOPLATIN. [Suspect]
     Active Substance: CARBOPLATIN
     Indication: CERVIX CARCINOMA
     Dosage: 654 MG QD 3RD CYCLE(S) ()
     Route: 042
  8. CARBOPLATIN. [Suspect]
     Active Substance: CARBOPLATIN
     Indication: CERVIX CARCINOMA
     Dosage: UNKNOWN 4TH CYCLE(S) ()
     Route: 042
  9. CARBOPLATIN. [Suspect]
     Active Substance: CARBOPLATIN
     Indication: CERVIX CARCINOMA
     Dosage: 720 MG QD 1ST CYCLE(S) ()
     Route: 042
  10. CAELYX (LIPOSOMAL DOXORUBICIN) [Suspect]
     Active Substance: DOXORUBICIN HYDROCHLORIDE
     Indication: CERVIX CARCINOMA
     Dosage: UNKNOWN 4TH CYCLE(S) ()
     Route: 042
  11. CAELYX (LIPOSOMAL DOXORUBICIN) [Suspect]
     Active Substance: DOXORUBICIN HYDROCHLORIDE
     Indication: CERVIX CARCINOMA
     Route: 042
  12. CAELYX (LIPOSOMAL DOXORUBICIN) [Suspect]
     Active Substance: DOXORUBICIN HYDROCHLORIDE
     Indication: CERVIX CARCINOMA
     Dosage: 67.6-UNK MG* 5 CYCLE(S)
     Route: 042
     Dates: start: 20040701, end: 20041021

REACTIONS (4)
  - Confusional state [Unknown]
  - Somnolence [Unknown]
  - Disease progression [Fatal]
  - Subileus [Unknown]

NARRATIVE: CASE EVENT DATE: 20040828
